FAERS Safety Report 8792764 (Version 1)
Quarter: 2012Q4

REPORT INFORMATION
  Report Type: Report from Study
  Country: JP (occurrence: JP)
  Receive Date: 20120918
  Receipt Date: 20120918
  Transmission Date: 20130627
  Serious: Yes (Life-Threatening, Other)
  Sender: FDA-Public Use
  Company Number: JP-VERTEX PHARMACEUTICAL INC.-2012-021227

PATIENT
  Age: 67 Year
  Sex: Male

DRUGS (10)
  1. VX-950 [Suspect]
     Indication: HEPATITIS C
     Dosage: 2250 mg, qd
     Route: 048
     Dates: start: 20120717
  2. VX-950 [Suspect]
     Dosage: 1500 mg, qd
     Route: 048
     Dates: start: 20120720
  3. RIBAVIRIN [Concomitant]
     Dosage: 800 mg, qd
     Route: 048
     Dates: start: 20120717
  4. RIBAVIRIN [Concomitant]
     Dosage: 400 mg, qd
     Route: 048
     Dates: start: 20120820
  5. PEGINTERFERON ALFA-2B [Concomitant]
     Dosage: 1.5 UNK, UNK
     Route: 058
     Dates: start: 20120717
  6. PEGINTERFERON ALFA-2B [Concomitant]
     Dosage: 1.39 UNK, UNK
     Route: 058
     Dates: start: 20120806
  7. PEGINTERFERON ALFA-2B [Concomitant]
     Dosage: 0.7 UNK, UNK
     Route: 058
     Dates: start: 20120813
  8. PEGINTERFERON ALFA-2B [Concomitant]
     Dosage: 0.8 UNK, UNK
     Route: 058
     Dates: start: 20120820
  9. LORFENAMIN [Concomitant]
     Dosage: 60 mg, prn
     Route: 048
     Dates: start: 20120719
  10. SALOBEL [Concomitant]
     Dosage: 2 DF, UNK
     Route: 048
     Dates: start: 20120809

REACTIONS (2)
  - Renal impairment [Recovered/Resolved]
  - Rash [Unknown]
